FAERS Safety Report 9084507 (Version 1)
Quarter: 2013Q1

REPORT INFORMATION
  Report Type: Report from Study
  Country: US (occurrence: US)
  Receive Date: 20130131
  Receipt Date: 20130131
  Transmission Date: 20140127
  Serious: No
  Sender: FDA-Public Use
  Company Number: US-ABBOTT-12P-163-0998396-00

PATIENT
  Age: 64 Year
  Sex: Male

DRUGS (3)
  1. HUMIRA [Suspect]
     Indication: PSORIASIS
     Dates: start: 20120818
  2. ABILIFY [Concomitant]
     Indication: NERVOUSNESS
     Dosage: 1 TABLET DAILY
  3. ABILIFY [Concomitant]
     Indication: AFFECTIVE DISORDER

REACTIONS (1)
  - Injection site pain [Recovered/Resolved]
